FAERS Safety Report 24425423 (Version 6)
Quarter: 2025Q4

REPORT INFORMATION
  Report Type: Report from Study
  Country: EU (occurrence: EU)
  Receive Date: 20241011
  Receipt Date: 20251004
  Transmission Date: 20260117
  Serious: Yes (Death, Other)
  Sender: AUROBINDO
  Company Number: EU-EMA-20160919-hksevhp-114744388

PATIENT
  Age: 54 Year
  Sex: Female

DRUGS (25)
  1. CAPECITABINE [Suspect]
     Active Substance: CAPECITABINE
     Indication: Metastases to liver
     Dosage: UNK
     Route: 065
  2. CAPECITABINE [Suspect]
     Active Substance: CAPECITABINE
     Indication: Invasive ductal breast carcinoma
  3. DOCETAXEL [Suspect]
     Active Substance: DOCETAXEL
     Indication: Invasive ductal breast carcinoma
     Dosage: 75 MILLIGRAM/SQ. METER, CYCLICAL (75 MG/M2 EVERY 21 DAYS)
     Route: 065
     Dates: start: 200512
  4. DOCETAXEL [Suspect]
     Active Substance: DOCETAXEL
     Indication: Metastases to liver
  5. EPIRUBICIN [Suspect]
     Active Substance: EPIRUBICIN
     Indication: Invasive ductal breast carcinoma
     Dosage: UNK
     Route: 065
  6. EPIRUBICIN [Suspect]
     Active Substance: EPIRUBICIN
     Indication: Metastases to liver
  7. GEMCITABINE [Suspect]
     Active Substance: GEMCITABINE
     Indication: Invasive ductal breast carcinoma
     Dosage: UNK
     Route: 065
  8. GEMCITABINE [Suspect]
     Active Substance: GEMCITABINE
     Indication: Metastases to liver
  9. MELPHALAN [Suspect]
     Active Substance: MELPHALAN
     Indication: Off label use
     Dosage: UNK
     Route: 065
  10. MELPHALAN [Suspect]
     Active Substance: MELPHALAN
     Indication: Metastases to liver
  11. MELPHALAN [Suspect]
     Active Substance: MELPHALAN
     Indication: Invasive ductal breast carcinoma
  12. PACLITAXEL [Suspect]
     Active Substance: PACLITAXEL
     Indication: Invasive ductal breast carcinoma
     Dosage: UNK
     Route: 065
  13. PACLITAXEL [Suspect]
     Active Substance: PACLITAXEL
     Indication: Metastases to liver
  14. VINORELBINE [Suspect]
     Active Substance: VINORELBINE TARTRATE
     Indication: Invasive ductal breast carcinoma
     Dosage: UNK
     Route: 065
  15. VINORELBINE [Suspect]
     Active Substance: VINORELBINE TARTRATE
     Indication: Metastases to liver
  16. EPIRUBICIN [Suspect]
     Active Substance: EPIRUBICIN
     Indication: Invasive ductal breast carcinoma
     Dosage: UNK
     Route: 065
  17. AFLIBERCEPT [Suspect]
     Active Substance: AFLIBERCEPT
     Indication: Invasive ductal breast carcinoma
     Dosage: 2 MILLIGRAM/KILOGRAM, CYCLICAL (2 MG/KG EVERY 21 DAYS)
     Route: 065
     Dates: start: 200512
  18. AFLIBERCEPT [Suspect]
     Active Substance: AFLIBERCEPT
     Indication: Metastases to liver
  19. ETOPOSIDE [Suspect]
     Active Substance: ETOPOSIDE
     Indication: Off label use
     Dosage: UNK
     Route: 048
  20. ETOPOSIDE [Suspect]
     Active Substance: ETOPOSIDE
     Indication: Metastases to liver
  21. ETOPOSIDE [Suspect]
     Active Substance: ETOPOSIDE
     Indication: Invasive ductal breast carcinoma
  22. TRASTUZUMAB [Suspect]
     Active Substance: TRASTUZUMAB
     Indication: Invasive ductal breast carcinoma
     Dosage: UNK
     Route: 065
  23. TRASTUZUMAB [Suspect]
     Active Substance: TRASTUZUMAB
     Indication: Metastases to liver
  24. AFLIBERCEPT [Concomitant]
     Active Substance: AFLIBERCEPT
     Indication: Metastases to liver
     Dosage: 2 MILLIGRAM/KILOGRAM, EVERY 21 DAYS
     Route: 065
     Dates: start: 200512
  25. DOCETAXEL [Concomitant]
     Active Substance: DOCETAXEL
     Indication: Metastases to liver
     Dosage: 75 MG/M2 EVERY 21 DAYS
     Route: 065
     Dates: start: 200512

REACTIONS (11)
  - Hepatic failure [Fatal]
  - Invasive ductal breast carcinoma [Fatal]
  - Malignant neoplasm progression [Fatal]
  - Renal atrophy [Fatal]
  - Metastases to heart [Fatal]
  - Hepatic cancer recurrent [Fatal]
  - Therapeutic product effect incomplete [Fatal]
  - Epistaxis [Unknown]
  - Thrombosis [Unknown]
  - Toxicity to various agents [Unknown]
  - Off label use [Unknown]

NARRATIVE: CASE EVENT DATE: 20050601
